FAERS Safety Report 4290207-9 (Version None)
Quarter: 2004Q1

REPORT INFORMATION
  Report Type: 
  Country: None (occurrence: None)
  Receive Date: 20040206
  Receipt Date: 20040127
  Transmission Date: 20041129
  Serious: Yes (Other)
  Sender: FDA-Public Use
  Company Number: 200410413BCC

PATIENT
  Sex: Female

DRUGS (3)
  1. ALEVE [Suspect]
     Dosage: ORAL
     Route: 048
  2. CELEBREX [Suspect]
     Dosage: ORAL
     Route: 048
  3. VIOXX [Suspect]
     Dosage: ORAL
     Route: 048

REACTIONS (2)
  - ASTHMA [None]
  - CONVULSION [None]
